FAERS Safety Report 5323040-7 (Version None)
Quarter: 2007Q2

REPORT INFORMATION
  Report Type: 
  Country: None (occurrence: None)
  Receive Date: 20070220
  Receipt Date: 20070110
  Transmission Date: 20071010
  Serious: No
  Sender: FDA-Public Use
  Company Number: WAES 0701USA01362

PATIENT
  Age: 63 Year
  Sex: Female

DRUGS (4)
  1. JANUVIA [Suspect]
     Indication: DIABETES MELLITUS
     Dosage: 100 MG/DAILY/PO
     Route: 048
     Dates: start: 20070109
  2. GLUCOPHAGE [Concomitant]
  3. MICRONASE [Concomitant]
  4. METOPROLOL SUCCINATE [Concomitant]

REACTIONS (2)
  - NASAL CONGESTION [None]
  - RHINORRHOEA [None]
